FAERS Safety Report 13985900 (Version 1)
Quarter: 2017Q3

REPORT INFORMATION
  Report Type: Spontaneous
  Country: US (occurrence: None)
  Receive Date: 20170919
  Receipt Date: 20170919
  Transmission Date: 20171128
  Serious: Yes (Hospitalization)
  Sender: FDA-Public Use
  Company Number: None

PATIENT
  Age: 35 Year
  Sex: Female

DRUGS (2)
  1. MAKENA [Suspect]
     Active Substance: HYDROXYPROGESTERONE CAPROATE
     Indication: PREGNANCY
     Route: 030
  2. PROCTOZONE [Concomitant]
     Active Substance: HYDROCORTISONE

REACTIONS (6)
  - Diarrhoea [None]
  - Discomfort [None]
  - Injection site pain [None]
  - Pain [None]
  - Haemorrhoids [None]
  - Abdominal discomfort [None]

NARRATIVE: CASE EVENT DATE: 20170913
